FAERS Safety Report 10950840 (Version 2)
Quarter: 2015Q2

REPORT INFORMATION
  Report Type: Spontaneous
  Country: CN (occurrence: CN)
  Receive Date: 20150324
  Receipt Date: 20150604
  Transmission Date: 20150821
  Serious: Yes (Hospitalization)
  Sender: FDA-Public Use
  Company Number: CN-ASTELLAS-2015US009509

PATIENT
  Age: 69 Year
  Sex: Male

DRUGS (1)
  1. MYCAMINE [Suspect]
     Active Substance: MICAFUNGIN SODIUM
     Indication: FUNGAL INFECTION
     Route: 042
     Dates: start: 20150303

REACTIONS (2)
  - Drug ineffective [Unknown]
  - Myoglobin blood increased [Not Recovered/Not Resolved]

NARRATIVE: CASE EVENT DATE: 201503
